FAERS Safety Report 9751477 (Version 2)
Quarter: 2013Q4

REPORT INFORMATION
  Report Type: Spontaneous
  Country: CA (occurrence: CA)
  Receive Date: 20131212
  Receipt Date: 20131212
  Transmission Date: 20140711
  Serious: Yes (Other)
  Sender: FDA-Public Use
  Company Number: CA-RB-050249-13

PATIENT
  Age: 36 Year
  Sex: Female
  Weight: 53 kg

DRUGS (3)
  1. SUBOXONE TABLET [Suspect]
     Indication: DRUG DEPENDENCE
     Dosage: DOSAGE DETAILS UNKNOWN
     Route: 060
     Dates: start: 20101029, end: 20130223
  2. SUBUTEX [Suspect]
     Indication: DRUG DEPENDENCE
     Dosage: TOTAL DOSAGE REQUESTED: 240 X 8 MG (8 MG X 240 DAYS)
     Route: 060
     Dates: start: 20130303, end: 20131021
  3. PRENATAL VITAMINS [Concomitant]
     Indication: VITAMIN SUPPLEMENTATION
     Dosage: DOSING DETAILS UNKNOWN
     Route: 065
     Dates: start: 2013

REACTIONS (2)
  - Maternal exposure during pregnancy [Recovered/Resolved]
  - Amniocentesis abnormal [Recovered/Resolved]
